FAERS Safety Report 9963002 (Version 1)
Quarter: 2014Q1

REPORT INFORMATION
  Report Type: Spontaneous
  Country: US (occurrence: US)
  Receive Date: 20140305
  Receipt Date: 20140305
  Transmission Date: 20141002
  Serious: No
  Sender: FDA-Public Use
  Company Number: US-TARO-2013P1002821

PATIENT
  Sex: Female

DRUGS (1)
  1. NYSTATIN CREAM USP 100,000 UNITS/G [Suspect]
     Indication: RASH
     Route: 061

REACTIONS (2)
  - Drug ineffective [Not Recovered/Not Resolved]
  - Rash [Unknown]
